FAERS Safety Report 18211137 (Version 2)
Quarter: 2020Q3

REPORT INFORMATION
  Report Type: Report from Study
  Country: None (occurrence: GB)
  Receive Date: 20200830
  Receipt Date: 20200902
  Transmission Date: 20201103
  Serious: Yes (Hospitalization)
  Sender: FDA-Public Use
  Company Number: GB-ABBVIE-20K-167-3541564-00

PATIENT
  Age: 72 Year
  Sex: Male

DRUGS (2)
  1. DUODOPA [Suspect]
     Active Substance: CARBIDOPA\LEVODOPA
     Dosage: 100ML CASSETTE DAILY, 5MG/1ML 20MG/1ML
     Route: 050
     Dates: end: 202008
  2. DUODOPA [Suspect]
     Active Substance: CARBIDOPA\LEVODOPA
     Indication: PARKINSON^S DISEASE
     Dosage: TITRATION
     Route: 050
     Dates: start: 20190107, end: 20190111

REACTIONS (4)
  - Disorientation [Unknown]
  - Cerebral artery embolism [Unknown]
  - Device dislocation [Unknown]
  - Confusional state [Unknown]

NARRATIVE: CASE EVENT DATE: 202008
